FAERS Safety Report 5138600-6 (Version None)
Quarter: 2006Q4

REPORT INFORMATION
  Report Type: 
  Country: None (occurrence: None)
  Receive Date: 20061030
  Receipt Date: 20060925
  Transmission Date: 20070319
  Serious: Yes (Hospitalization)
  Sender: FDA-Public Use
  Company Number: US-GLAXOSMITHKLINE-A0621465A

PATIENT
  Age: 64 Year
  Sex: Female

DRUGS (4)
  1. ARIXTRA [Suspect]
     Dosage: 7.5MG PER DAY
     Route: 058
  2. NPH INSULIN [Concomitant]
     Route: 058
  3. CHEMOTHERAPY [Concomitant]
  4. UNSPECIFIED MEDICATION [Concomitant]
     Route: 048

REACTIONS (3)
  - ABDOMINAL PAIN [None]
  - COMPUTERISED TOMOGRAM ABDOMEN ABNORMAL [None]
  - INJECTION SITE REACTION [None]
